FAERS Safety Report 19817199 (Version 1)
Quarter: 2021Q3

REPORT INFORMATION
  Report Type: Spontaneous
  Country: US (occurrence: US)
  Receive Date: 20210910
  Receipt Date: 20210910
  Transmission Date: 20211014
  Serious: Yes (Hospitalization)
  Sender: FDA-Public Use
  Company Number: US-HORIZON THERAPEUTICS-HZN-2021-006588

PATIENT

DRUGS (2)
  1. TEPEZZA [Suspect]
     Active Substance: TEPROTUMUMAB-TRBW
     Indication: PRODUCT USED FOR UNKNOWN INDICATION
     Route: 065
  2. TEPEZZA [Suspect]
     Active Substance: TEPROTUMUMAB-TRBW
     Dosage: 4TH INFUSION
     Route: 065

REACTIONS (2)
  - Amnesia [Unknown]
  - Confusional state [Unknown]
